FAERS Safety Report 4604119-1 (Version None)
Quarter: 2005Q1

REPORT INFORMATION
  Report Type: 
  Country: None (occurrence: None)
  Receive Date: 20050309
  Receipt Date: 20050309
  Transmission Date: 20050727
  Serious: Yes (Other)
  Sender: FDA-Public Use
  Company Number: None

PATIENT
  Sex: Male
  Weight: 80.7403 kg

DRUGS (1)
  1. EFFEXOR XR [Suspect]
     Dosage: ONE PO QD
     Route: 048
     Dates: start: 20040920

REACTIONS (4)
  - BALANCE DISORDER [None]
  - DRUG WITHDRAWAL SYNDROME [None]
  - HYPERSOMNIA [None]
  - PHARMACEUTICAL PRODUCT COMPLAINT [None]
